FAERS Safety Report 7132700-7 (Version None)
Quarter: 2010Q4

REPORT INFORMATION
  Report Type: 
  Country: None (occurrence: None)
  Receive Date: 20101129
  Receipt Date: 20101129
  Transmission Date: 20110411
  Serious: Yes (Life-Threatening, Hospitalization, Other)
  Sender: FDA-Public Use
  Company Number: None

PATIENT
  Age: 84 Year
  Sex: Female
  Weight: 59.8748 kg

DRUGS (1)
  1. METHOTREXATE [Suspect]
     Indication: RHEUMATOID ARTHRITIS
     Dosage: 0.3 ML BY MOUTH ONCE A WEEK PO
     Route: 048
     Dates: start: 20100804, end: 20100922

REACTIONS (13)
  - AMNESIA [None]
  - COUGH [None]
  - FATIGUE [None]
  - INCREASED UPPER AIRWAY SECRETION [None]
  - INFECTION [None]
  - INFLUENZA LIKE ILLNESS [None]
  - LUNG NEOPLASM [None]
  - LYMPHADENOPATHY [None]
  - MASS [None]
  - NEOPLASM MALIGNANT [None]
  - RASH [None]
  - RETCHING [None]
  - URTICARIA [None]
